FAERS Safety Report 8831769 (Version 3)
Quarter: 2012Q4

REPORT INFORMATION
  Report Type: 
  Country: FR (occurrence: FR)
  Receive Date: 20121009
  Receipt Date: 20121205
  Transmission Date: 20130627
  Serious: Yes (Hospitalization)
  Sender: FDA-Public Use
  Company Number: FR-B.I. PHARMACEUTICALS,INC./RIDGEFIELD-2012-FF-01388FF

PATIENT
  Age: 64 None
  Sex: Female

DRUGS (3)
  1. PRADAXA [Suspect]
     Indication: ARRHYTHMIA
     Dosage: 220 mg
     Route: 048
     Dates: start: 20120623, end: 201207
  2. CORDARONE [Suspect]
     Route: 048
     Dates: start: 20120623, end: 201207
  3. RENITEC [Concomitant]

REACTIONS (7)
  - Perirenal haematoma [Recovered/Resolved]
  - Muscle haemorrhage [Recovered/Resolved]
  - Haematoma infection [Recovered/Resolved]
  - Post procedural haematoma [Recovered/Resolved]
  - Abscess [Recovered/Resolved]
  - Sepsis [Recovered/Resolved]
  - Abdominal pain [Recovered/Resolved]
